FAERS Safety Report 26139427 (Version 1)
Quarter: 2025Q4

REPORT INFORMATION
  Report Type: Spontaneous
  Country: EU (occurrence: US)
  Receive Date: 20251210
  Receipt Date: 20251210
  Transmission Date: 20260118
  Serious: Yes (Other)
  Sender: AUROBINDO
  Company Number: EU-MLMSERVICE-20251120-PI720921-00067-1

PATIENT
  Age: 31 Year
  Sex: Female

DRUGS (1)
  1. BISOPROLOL [Suspect]
     Active Substance: BISOPROLOL
     Indication: Sinus bradycardia
     Dosage: 2.5 MILLIGRAM, ONCE A DAY (LOW DOSE)
     Route: 065

REACTIONS (2)
  - Bradycardia [Unknown]
  - Condition aggravated [Unknown]
